FAERS Safety Report 18285858 (Version 1)
Quarter: 2020Q3

REPORT INFORMATION
  Report Type: Spontaneous
  Country: GB (occurrence: GB)
  Receive Date: 20200919
  Receipt Date: 20200919
  Transmission Date: 20201103
  Serious: Yes (Other)
  Sender: FDA-Public Use
  Company Number: GB-TEVA-2020-GB-1828288

PATIENT
  Sex: Female
  Weight: 62.5 kg

DRUGS (1)
  1. DOXYCYCLINE. [Suspect]
     Active Substance: DOXYCYCLINE
     Indication: ARTHROPOD BITE
     Dosage: 200 MILLIGRAM
     Route: 048
     Dates: start: 20200715, end: 20200805

REACTIONS (4)
  - Paraesthesia [Unknown]
  - Photosensitivity reaction [Recovered/Resolved]
  - Erythema [Unknown]
  - Sunburn [Unknown]

NARRATIVE: CASE EVENT DATE: 20200727
